FAERS Safety Report 24679510 (Version 1)
Quarter: 2024Q4

REPORT INFORMATION
  Report Type: Report from Study
  Country: US (occurrence: US)
  Receive Date: 20241129
  Receipt Date: 20241129
  Transmission Date: 20250114
  Serious: Yes (Hospitalization, Other)
  Sender: ALEXION PHARMACEUTICALS
  Company Number: US-ASTRAZENECA-202411USA015105US

PATIENT

DRUGS (13)
  1. OSIMERTINIB [Suspect]
     Active Substance: OSIMERTINIB
     Indication: Hypothyroidism
     Dosage: 80 MILLIGRAM, QD
  2. MILK OF MAGNESIA [Concomitant]
     Active Substance: MAGNESIUM HYDROXIDE
     Dosage: SUS 2400MG/3
  3. OMEPRAZOLE [Concomitant]
     Active Substance: OMEPRAZOLE
     Dosage: POW
  4. PSYLLIUM [Concomitant]
     Active Substance: PLANTAGO SEED
     Dosage: HUS POW
  5. ATORVASTATIN [Concomitant]
     Active Substance: ATORVASTATIN
     Dosage: UNK MILLIGRAM
  6. CALCIUM [Concomitant]
     Active Substance: CALCIUM
     Dosage: UNK MILLIGRAM
  7. FUROSEMIDE [Concomitant]
     Active Substance: FUROSEMIDE
     Dosage: UNK MILLIGRAM
  8. LEVOTHYROXINE [Concomitant]
     Active Substance: LEVOTHYROXINE
     Dosage: UNK MICROGRAM
  9. LOSARTAN [Concomitant]
     Active Substance: LOSARTAN
     Dosage: UNK MILLIGRAM
  10. VITAMINS [Concomitant]
     Active Substance: VITAMINS
  11. Omega [Concomitant]
     Dosage: UNK MILLIGRAM
  12. ONDANSETRON [Concomitant]
     Active Substance: ONDANSETRON
     Dosage: UNK MILLIGRAM
  13. HYDROCHLOROTHIAZIDE [Concomitant]
     Active Substance: HYDROCHLOROTHIAZIDE
     Dosage: UNK25

REACTIONS (16)
  - Diabetes mellitus [Unknown]
  - Sjogren^s syndrome [Unknown]
  - Myalgia [Unknown]
  - Gait disturbance [Unknown]
  - Asthenia [Unknown]
  - Abdominal pain upper [Unknown]
  - Poor quality sleep [Unknown]
  - Alopecia [Unknown]
  - Nausea [Unknown]
  - Constipation [Unknown]
  - Decreased appetite [Unknown]
  - Bowel movement irregularity [Unknown]
  - Joint swelling [Unknown]
  - Dry eye [Unknown]
  - Fatigue [Unknown]
  - Cough [Unknown]
